FAERS Safety Report 23997543 (Version 1)
Quarter: 2024Q2

REPORT INFORMATION
  Report Type: Report from Study
  Country: US (occurrence: None)
  Receive Date: 20240621
  Receipt Date: 20240621
  Transmission Date: 20240715
  Serious: Yes (Other)
  Sender: FDA-Public Use
  Company Number: 2024A138569

PATIENT
  Sex: Male
  Weight: 104.4 kg

DRUGS (1)
  1. CALQUENCE [Suspect]
     Active Substance: ACALABRUTINIB
     Indication: Chronic lymphocytic leukaemia
     Route: 048
     Dates: start: 20240524

REACTIONS (5)
  - White blood cell count abnormal [Unknown]
  - Blood glucose increased [Unknown]
  - Headache [Unknown]
  - Erythema [Unknown]
  - Product dose omission in error [Unknown]
